FAERS Safety Report 5223476-9 (Version None)
Quarter: 2007Q1

REPORT INFORMATION
  Report Type: 
  Country: None (occurrence: None)
  Receive Date: 20070125
  Receipt Date: 20070111
  Transmission Date: 20070707
  Serious: Yes (Hospitalization)
  Sender: FDA-Public Use
  Company Number: 2006PV021080

PATIENT
  Age: 83 Year
  Sex: Female
  Weight: 88.4514 kg

DRUGS (15)
  1. BYETTA [Suspect]
     Indication: DIABETES MELLITUS NON-INSULIN-DEPENDENT
     Dosage: 5 MCG;BID;SC
     Route: 058
     Dates: start: 20060909, end: 20060910
  2. APRESOLINE [Concomitant]
  3. DIOVAN [Concomitant]
  4. PRPCARDOA XL [Concomitant]
  5. OSCAL [Concomitant]
  6. FLOVENT [Concomitant]
  7. FOSAMAX [Concomitant]
  8. THERAGRAM M [Concomitant]
  9. LEXAPRO [Concomitant]
  10. PROTONIX [Concomitant]
  11. DEMADEX [Concomitant]
  12. ARICEPT [Concomitant]
  13. NOVOLIN (SLIDING SCALE) [Concomitant]
  14. AMARYL [Concomitant]
  15. HUMALOG INSULIN (SLIDING SCALE) [Concomitant]

REACTIONS (10)
  - ASTHENIA [None]
  - BLOOD GLUCOSE INCREASED [None]
  - CARDIAC FAILURE CONGESTIVE [None]
  - COLD SWEAT [None]
  - CONDITION AGGRAVATED [None]
  - DEHYDRATION [None]
  - FALL [None]
  - HYPOGLYCAEMIA [None]
  - MALAISE [None]
  - TREMOR [None]
